FAERS Safety Report 12876141 (Version 1)
Quarter: 2016Q4

REPORT INFORMATION
  Report Type: Spontaneous
  Country: US (occurrence: US)
  Receive Date: 20161021
  Receipt Date: 20161021
  Transmission Date: 20170207
  Serious: Yes (Life-Threatening, Disabling)
  Sender: FDA-Public Use
  Company Number: None

PATIENT
  Age: 63 Year
  Sex: Male
  Weight: 88.65 kg

DRUGS (6)
  1. POLICOSANOL [Concomitant]
  2. COQ10 [Concomitant]
     Active Substance: UBIDECARENONE
  3. RED YEYAST RICE [Concomitant]
  4. BENAZEPRIL HCL [Concomitant]
     Active Substance: BENAZEPRIL HYDROCHLORIDE
  5. SIMVASTATIN. [Suspect]
     Active Substance: SIMVASTATIN
     Indication: BLOOD CHOLESTEROL
     Dosage: ?          QUANTITY:1 TABLET(S);?
     Route: 048
     Dates: start: 20071210, end: 20160103
  6. FISH OIL [Concomitant]
     Active Substance: FISH OIL

REACTIONS (5)
  - Movement disorder [None]
  - Fall [None]
  - Injury [None]
  - Impaired work ability [None]
  - Balance disorder [None]

NARRATIVE: CASE EVENT DATE: 20160108
